FAERS Safety Report 9970243 (Version 2)
Quarter: 2014Q1

REPORT INFORMATION
  Report Type: Spontaneous
  Country: FR (occurrence: None)
  Receive Date: 20140304
  Receipt Date: 20140304
  Transmission Date: 20141002
  Serious: Yes (Life-Threatening, Hospitalization, Other)
  Sender: FDA-Public Use
  Company Number: ADR-2014-00319

PATIENT
  Age: 25 Year
  Sex: Female

DRUGS (2)
  1. BACLOFEN [Suspect]
     Indication: ALCOHOLISM
  2. ALCOHOL (ETHANOL) [Suspect]

REACTIONS (4)
  - Coma [None]
  - Hypertension [None]
  - Agitation [None]
  - Poisoning [None]
